FAERS Safety Report 14119390 (Version 1)
Quarter: 2017Q4

REPORT INFORMATION
  Report Type: Spontaneous
  Country: US (occurrence: None)
  Receive Date: 20171023
  Receipt Date: 20171023
  Transmission Date: 20180321
  Serious: No
  Sender: FDA-Public Use
  Company Number: None

PATIENT
  Sex: Female
  Weight: 99.79 kg

DRUGS (2)
  1. OTEZLA [Suspect]
     Active Substance: APREMILAST
     Indication: PSORIATIC ARTHROPATHY
     Route: 048
     Dates: start: 201602
  2. STELARA [Suspect]
     Active Substance: USTEKINUMAB
     Dosage: 90MG Q 12 WEEKS SUBQ
     Route: 058
     Dates: start: 201605

REACTIONS (1)
  - Helicobacter infection [None]
